FAERS Safety Report 8948168 (Version 2)
Quarter: 2013Q1

REPORT INFORMATION
  Report Type: Spontaneous
  Country: US (occurrence: US)
  Receive Date: 20121204
  Receipt Date: 20130103
  Transmission Date: 20140127
  Serious: No
  Sender: FDA-Public Use
  Company Number: US-PFIZER INC-2012304091

PATIENT
  Sex: 0

DRUGS (2)
  1. DILANTIN-125 [Suspect]
     Dosage: 300 MG, AT NIGHT
  2. DILANTIN-125 [Suspect]
     Dosage: 200MG AT NIGHT AND 200MG IN THE MORNING

REACTIONS (1)
  - Poor quality sleep [Unknown]
